FAERS Safety Report 5853822-4 (Version None)
Quarter: 2008Q3

REPORT INFORMATION
  Report Type: 
  Country: None (occurrence: None)
  Receive Date: 20080822
  Receipt Date: 20080814
  Transmission Date: 20090109
  Serious: Yes (Other)
  Sender: FDA-Public Use
  Company Number: US-ASTRAZENECA-2008UW16696

PATIENT
  Age: 65 Year
  Sex: Female
  Weight: 104.3 kg

DRUGS (3)
  1. NEXIUM [Suspect]
     Indication: GASTROOESOPHAGEAL REFLUX DISEASE
     Route: 048
     Dates: start: 20030901
  2. NEXIUM [Suspect]
     Route: 048
  3. LIPITOR [Concomitant]

REACTIONS (1)
  - THORACIC VERTEBRAL FRACTURE [None]
